FAERS Safety Report 8215318-4 (Version None)
Quarter: 2012Q1

REPORT INFORMATION
  Report Type: 
  Country: None (occurrence: None)
  Receive Date: 20120316
  Receipt Date: 20120313
  Transmission Date: 20120608
  Serious: Yes (Hospitalization)
  Sender: FDA-Public Use
  Company Number: FR-AMGEN-FRANI2012016416

PATIENT
  Age: 33 Year
  Sex: Female

DRUGS (1)
  1. ROMIPLOSTIM [Suspect]
     Indication: IDIOPATHIC THROMBOCYTOPENIC PURPURA
     Dosage: 5 MUG/KG, UNK

REACTIONS (3)
  - PULMONARY EMBOLISM [None]
  - PYELONEPHRITIS [None]
  - RENAL VEIN THROMBOSIS [None]
